FAERS Safety Report 21923549 (Version 1)
Quarter: 2023Q1

REPORT INFORMATION
  Report Type: Spontaneous
  Country: US (occurrence: US)
  Receive Date: 20230130
  Receipt Date: 20230130
  Transmission Date: 20230418
  Serious: No
  Sender: FDA-Public Use
  Company Number: US-JNJFOC-20230139607

PATIENT
  Age: 61 Year
  Sex: Female

DRUGS (2)
  1. STELARA [Suspect]
     Active Substance: USTEKINUMAB
     Indication: Product used for unknown indication
     Route: 058
  2. GATTEX [Concomitant]
     Active Substance: TEDUGLUTIDE\WATER

REACTIONS (14)
  - Weight increased [Unknown]
  - Oedema [Unknown]
  - COVID-19 [Recovered/Resolved]
  - Oedema peripheral [Not Recovered/Not Resolved]
  - Decreased appetite [Unknown]
  - Nausea [Unknown]
  - Vomiting [Unknown]
  - Hypervolaemia [Unknown]
  - Abdominal pain [Unknown]
  - Dyspepsia [Unknown]
  - Pain [Unknown]
  - Product dose omission issue [Unknown]
  - Hypervolaemia [Unknown]
  - Dyspepsia [Unknown]
